FAERS Safety Report 6527982-6 (Version None)
Quarter: 2010Q1

REPORT INFORMATION
  Report Type: 
  Country: None (occurrence: None)
  Receive Date: 20100105
  Receipt Date: 20100105
  Transmission Date: 20100710
  Serious: Yes (Life-Threatening, Disabling)
  Sender: FDA-Public Use
  Company Number: None

PATIENT
  Age: 66 Year
  Sex: Male
  Weight: 129.2752 kg

DRUGS (1)
  1. VESICARE [Suspect]
     Indication: MICTURITION DISORDER
     Dosage: 1 TABLET BY MOUTH EVERY MORNING OTHER
     Route: 050
     Dates: start: 20091111, end: 20091220

REACTIONS (4)
  - BLISTER [None]
  - ERYTHEMA [None]
  - OEDEMA PERIPHERAL [None]
  - SKIN ULCER [None]
